FAERS Safety Report 9916277 (Version 1)
Quarter: 2014Q1

REPORT INFORMATION
  Report Type: Spontaneous
  Country: US (occurrence: None)
  Receive Date: 20140219
  Receipt Date: 20140219
  Transmission Date: 20141002
  Serious: Yes (Hospitalization)
  Sender: FDA-Public Use
  Company Number: UTC-044614

PATIENT
  Age: 75 Year
  Sex: Female

DRUGS (1)
  1. TYVASO [Suspect]
     Indication: PULMONARY ARTERIAL HYPERTENSION
     Route: 055
     Dates: start: 20120907

REACTIONS (5)
  - Fall [None]
  - Pelvic fracture [None]
  - Urinary tract infection [None]
  - Dyspnoea [None]
  - Treatment noncompliance [None]
